FAERS Safety Report 8005482-4 (Version None)
Quarter: 2011Q4

REPORT INFORMATION
  Report Type: 
  Country: None (occurrence: None)
  Receive Date: 20111223
  Receipt Date: 20111215
  Transmission Date: 20120403
  Serious: Yes (Hospitalization, Other)
  Sender: FDA-Public Use
  Company Number: PHHY2011JP109765

PATIENT
  Age: 30 Year
  Sex: Female

DRUGS (5)
  1. CYCLOPHOSPHAMIDE [Concomitant]
     Indication: STEM CELL TRANSPLANT
     Dosage: 60 MG/KG, PER DAY
  2. IRRADIATION [Concomitant]
     Indication: STEM CELL TRANSPLANT
     Dosage: UNK UKN, UNK
  3. CYCLOSPORINE [Suspect]
     Indication: PROPHYLAXIS AGAINST GRAFT VERSUS HOST DISEASE
     Dosage: UNK UKN, UNK
  4. GEMTUZUMAB OZOGAMICIN [Concomitant]
     Dosage: 6 MG/M2, PER DAY
  5. METHOTREXATE [Concomitant]
     Indication: PROPHYLAXIS AGAINST GRAFT VERSUS HOST DISEASE
     Dosage: UNK UKN, UNK

REACTIONS (7)
  - GRAFT VERSUS HOST DISEASE IN SKIN [None]
  - ASCITES [None]
  - THROMBOCYTOPENIA [None]
  - CYSTITIS [None]
  - PLEURAL EFFUSION [None]
  - PHARYNGITIS [None]
  - COLITIS [None]
